FAERS Safety Report 9433076 (Version 4)
Quarter: 2014Q1

REPORT INFORMATION
  Report Type: Report from Study
  Country: JP (occurrence: JP)
  Receive Date: 20130731
  Receipt Date: 20140306
  Transmission Date: 20141002
  Serious: Yes (Life-Threatening, Hospitalization, Other)
  Sender: FDA-Public Use
  Company Number: JP-ROCHE-1253725

PATIENT
  Age: 58 Year
  Sex: Male
  Weight: 68 kg

DRUGS (12)
  1. METHOXY POLYETHYLENE GLYCOL-EPOETIN BETA [Suspect]
     Indication: NEPHROGENIC ANAEMIA
     Route: 058
     Dates: start: 20120723, end: 20121203
  2. CRESTOR [Suspect]
     Indication: PRODUCT USED FOR UNKNOWN INDICATION
     Route: 048
  3. BAYASPIRIN [Concomitant]
     Route: 048
  4. PLAVIX [Concomitant]
     Route: 048
  5. WARFARIN POTASSIUM [Concomitant]
     Route: 048
  6. LASIX [Concomitant]
     Route: 048
  7. TANATRIL [Concomitant]
     Route: 048
  8. FEBURIC [Concomitant]
     Route: 048
     Dates: end: 20130107
  9. SODIUM BICARBONATE [Concomitant]
     Dosage: DRUG REPORTED AS JUSO
     Route: 048
     Dates: end: 20130107
  10. AMLODIN [Concomitant]
     Route: 048
     Dates: end: 20130107
  11. ARGAMATE [Concomitant]
     Route: 048
     Dates: end: 20130107
  12. ANCARON [Concomitant]
     Route: 048
     Dates: end: 20130107

REACTIONS (7)
  - Cardiac failure [Recovered/Resolved]
  - Renal failure [Recovered/Resolved]
  - Pulmonary congestion [Unknown]
  - Angina pectoris [Unknown]
  - Weight increased [Unknown]
  - Hypocholesterolaemia [Not Recovered/Not Resolved]
  - Hypocalcaemia [Recovered/Resolved]
